FAERS Safety Report 6675074-8 (Version None)
Quarter: 2010Q1

REPORT INFORMATION
  Report Type: 
  Country: None (occurrence: None)
  Receive Date: 20100331
  Receipt Date: 20091023
  Transmission Date: 20100710
  Serious: Yes (Other)
  Sender: FDA-Public Use
  Company Number: 2009254851

PATIENT
  Age: 77 Year
  Sex: Male
  Weight: 63.5 kg

DRUGS (6)
  1. SUNITINIB MALATE [Suspect]
     Indication: RENAL CANCER
     Dosage: 50 MG, 1X/DAY, 4 WEEKS ON/2 WEEKS OFF, ORAL
     Route: 048
     Dates: start: 20090703
  2. LISINOPRIL [Concomitant]
  3. GABAPENTIN [Concomitant]
  4. SYNTHROID [Concomitant]
  5. ASPIRIN [Concomitant]
  6. NORVASC [Concomitant]

REACTIONS (1)
  - BONE MARROW FAILURE [None]
